FAERS Safety Report 15775213 (Version 1)
Quarter: 2018Q4

REPORT INFORMATION
  Report Type: Spontaneous
  Country: DE (occurrence: DE)
  Receive Date: 20181231
  Receipt Date: 20181231
  Transmission Date: 20190205
  Serious: Yes (Other)
  Sender: FDA-Public Use
  Company Number: DE-ACCORD-098443

PATIENT
  Sex: Male
  Weight: 102 kg

DRUGS (4)
  1. IRINOMEDAC [Concomitant]
     Indication: MIXED ADENONEUROENDOCRINE CARCINOMA
     Dosage: 400 MG, CYCLIC (180 MG/M2; LAST ADMINISTRATION BEFORE AE ONSET: 09 JAN 2017)
     Route: 042
     Dates: start: 20170109, end: 20170124
  2. ONCOFOLIC [Concomitant]
     Active Substance: FOLATE SODIUM
     Indication: MIXED ADENONEUROENDOCRINE CARCINOMA
     Dosage: 880 MG, CYCLIC (400 MG/M2; LAST ADMINISTRATION BEFORE AE ONSET: 09 JAN 2017)
     Route: 042
  3. GRANISETRON [Concomitant]
     Active Substance: GRANISETRON
     Indication: PREMEDICATION
     Dosage: 1 MG, UNK (DURING THERAPY)
  4. 5-FLUOROURACIL [Suspect]
     Active Substance: FLUOROURACIL
     Indication: MIXED ADENONEUROENDOCRINE CARCINOMA
     Dosage: 3535 MG, CYCLIC (1600 MG/M2 LAST ADMINISTRATION BEFORE AE ONSET: 10 JAN 2017)
     Route: 042

REACTIONS (1)
  - Peripheral sensory neuropathy [Not Recovered/Not Resolved]
